FAERS Safety Report 9432188 (Version 9)
Quarter: 2014Q3

REPORT INFORMATION
  Report Type: Spontaneous
  Country: US (occurrence: None)
  Receive Date: 20130729
  Receipt Date: 20140930
  Transmission Date: 20150326
  Serious: Yes (Hospitalization)
  Sender: FDA-Public Use
  Company Number: US-000732

PATIENT
  Age: 57 Year
  Sex: Female
  Weight: 63.5 kg

DRUGS (25)
  1. CHOLECALCIFEROL [Concomitant]
     Active Substance: CHOLECALCIFEROL
  2. METRONIDAZOLE. [Concomitant]
     Active Substance: METRONIDAZOLE
  3. CODEINE SULFATE. [Concomitant]
     Active Substance: CODEINE SULFATE
  4. CHOLESTYRAMINE. [Concomitant]
     Active Substance: CHOLESTYRAMINE
  5. CIPRO /00697201/ [Concomitant]
     Active Substance: CIPROFLOXACIN
  6. CARAFATE [Concomitant]
     Active Substance: SUCRALFATE
  7. ROBINUL [Concomitant]
     Active Substance: GLYCOPYRROLATE
  8. FOLIC ACID. [Concomitant]
     Active Substance: FOLIC ACID
  9. GLYCOPYRROLATE /00196201/ [Concomitant]
  10. MIRALAX [Concomitant]
     Active Substance: POLYETHYLENE GLYCOL 3350
  11. PRENATAL VITAMINS /02014401/ [Concomitant]
     Active Substance: VITAMINS
  12. FENTANYL. [Concomitant]
     Active Substance: FENTANYL
  13. LOSARTAN [Concomitant]
     Active Substance: LOSARTAN
  14. ATORVASTATIN [Concomitant]
     Active Substance: ATORVASTATIN
  15. VENLAFAXINE [Concomitant]
     Active Substance: VENLAFAXINE HYDROCHLORIDE
  16. AQUADEKS [Concomitant]
  17. FLAGYL [Concomitant]
     Active Substance: METRONIDAZOLE\METRONIDAZOLE HYDROCHLORIDE
  18. PROTONIX [Concomitant]
     Active Substance: PANTOPRAZOLE SODIUM
  19. REGLAN [Concomitant]
     Active Substance: METOCLOPRAMIDE HYDROCHLORIDE
  20. SOLUTIONS FOR PARENTERAL NUTRITION [Concomitant]
     Active Substance: AMINO ACIDS\DEXTROSE\ELECTROLYTES NOS
  21. PROMETHAZINE [Concomitant]
     Active Substance: PROMETHAZINE\PROMETHAZINE HYDROCHLORIDE
  22. ENDOCET [Concomitant]
     Active Substance: ACETAMINOPHEN\OXYCODONE HYDROCHLORIDE
  23. CYANOCOBALAMIN. [Concomitant]
     Active Substance: CYANOCOBALAMIN
  24. GATTEX [Suspect]
     Active Substance: TEDUGLUTIDE\WATER
     Indication: SHORT-BOWEL SYNDROME
     Dosage: STREN/VOLUM: 0.38ML /FEQU: 1 X DAY
     Route: 058
     Dates: start: 201305, end: 20130702
  25. OXYCODONE AND ACETAMINOPHEN [Concomitant]
     Active Substance: ACETAMINOPHEN\OXYCODONE\OXYCODONE HYDROCHLORIDE

REACTIONS (18)
  - Back pain [None]
  - Ileus [None]
  - Dyslipidaemia [None]
  - Diarrhoea [None]
  - Nausea [None]
  - Constipation [None]
  - Gallbladder disorder [None]
  - Dyspepsia [None]
  - Frequent bowel movements [None]
  - Malnutrition [None]
  - Abdominal pain [None]
  - Weight decreased [None]
  - Cholecystitis [None]
  - Enteritis [None]
  - Hyperhidrosis [None]
  - Flatulence [None]
  - Pancreatitis [None]
  - Intestinal obstruction [None]

NARRATIVE: CASE EVENT DATE: 20130626
